FAERS Safety Report 8462995-9 (Version None)
Quarter: 2012Q2

REPORT INFORMATION
  Report Type: 
  Country: None (occurrence: None)
  Receive Date: 20120625
  Receipt Date: 20120531
  Transmission Date: 20120825
  Serious: Yes (Life-Threatening, Other)
  Sender: FDA-Public Use
  Company Number: FR-GLAXOSMITHKLINE-B0805132A

PATIENT
  Sex: Male
  Weight: 70 kg

DRUGS (3)
  1. MODOPAR [Concomitant]
     Indication: PARKINSON'S DISEASE
     Dosage: 750MG PER DAY
     Route: 048
  2. CORDARONE [Concomitant]
     Indication: CARDIAC DISORDER
     Route: 065
  3. REQUIP [Suspect]
     Indication: PARKINSON'S DISEASE
     Dosage: 8MG PER DAY
     Route: 048
     Dates: start: 20110901, end: 20111201

REACTIONS (6)
  - AGGRESSION [None]
  - DISORIENTATION [None]
  - INCORRECT DOSE ADMINISTERED [None]
  - HALLUCINATION [None]
  - FEAR [None]
  - DELIRIUM [None]
